FAERS Safety Report 13350729 (Version 1)
Quarter: 2017Q1

REPORT INFORMATION
  Report Type: Spontaneous
  Country: US (occurrence: US)
  Receive Date: 20170320
  Receipt Date: 20170320
  Transmission Date: 20170429
  Serious: Yes (Hospitalization, Other)
  Sender: FDA-Public Use
  Company Number: US-BIOGEN-2017BI00373310

PATIENT
  Age: 49 Year
  Sex: Female

DRUGS (2)
  1. AVONEX [Suspect]
     Active Substance: INTERFERON BETA-1A
     Indication: PRODUCT USED FOR UNKNOWN INDICATION
     Route: 065
  2. COPAXONE [Concomitant]
     Active Substance: GLATIRAMER ACETATE
     Indication: MULTIPLE SCLEROSIS
     Route: 058
     Dates: start: 20140307, end: 20161021

REACTIONS (8)
  - Multiple sclerosis relapse [Recovered/Resolved]
  - Confusional state [Unknown]
  - Tremor [Recovered/Resolved]
  - Incontinence [Recovered/Resolved]
  - Activities of daily living impaired [Recovered/Resolved]
  - Systemic lupus erythematosus [Unknown]
  - Abasia [Recovered/Resolved]
  - Amnesia [Unknown]

NARRATIVE: CASE EVENT DATE: 20160321
